FAERS Safety Report 25706390 (Version 1)
Quarter: 2025Q3

REPORT INFORMATION
  Report Type: Spontaneous
  Country: US (occurrence: None)
  Receive Date: 20250820
  Receipt Date: 20250820
  Transmission Date: 20251021
  Serious: Yes (Other)
  Sender: FDA-CTU
  Company Number: None

PATIENT
  Age: 15 Year
  Sex: Male
  Weight: 46.6 kg

DRUGS (1)
  1. SKYTROFA [Suspect]
     Active Substance: LONAPEGSOMATROPIN-TCGD
     Dates: start: 20250818, end: 20250820

REACTIONS (2)
  - Throat tightness [None]
  - Rash [None]

NARRATIVE: CASE EVENT DATE: 20250819
